FAERS Safety Report 8112039-3 (Version None)
Quarter: 2012Q1

REPORT INFORMATION
  Report Type: 
  Country: None (occurrence: None)
  Receive Date: 20120203
  Receipt Date: 20120126
  Transmission Date: 20120608
  Serious: Yes (Other)
  Sender: FDA-Public Use
  Company Number: JP-ASTELLAS-2011JP007896

PATIENT
  Sex: Male

DRUGS (16)
  1. PREDNISOLONE [Suspect]
     Dosage: 3.5 MG, BID
     Route: 048
     Dates: start: 20060916
  2. PREDNISOLONE [Suspect]
     Dosage: 5 MG, UID/QD
     Route: 048
     Dates: start: 20070820
  3. PROGRAF [Suspect]
     Indication: RHEUMATOID ARTHRITIS
     Dosage: 1 MG, UID/QD
     Route: 048
     Dates: start: 20100628
  4. FOLIC ACID [Suspect]
     Indication: RHEUMATOID ARTHRITIS
     Dosage: 5 MG, UID/QD
     Route: 048
     Dates: start: 20040712
  5. PREDNISOLONE [Suspect]
     Dosage: 7.5 MG, UNKNOWN/D
     Route: 048
     Dates: start: 20050421
  6. PREDNISOLONE [Suspect]
     Dosage: 3 MG, BID
     Route: 048
     Dates: start: 20070521
  7. ACTONEL [Suspect]
     Indication: OSTEOPOROSIS
     Dosage: 17.5 MG, UID/QD
     Route: 065
     Dates: start: 20081007, end: 20110926
  8. DIOVAN [Concomitant]
     Dosage: 160 MG, UNKNOWN/D
     Route: 048
     Dates: start: 20070324
  9. RHEUMATREX [Suspect]
     Dosage: 8 MG, UID/QD
     Route: 048
     Dates: start: 20040621
  10. MOBIC [Suspect]
     Indication: RHEUMATOID ARTHRITIS
     Dosage: 10 MG, UID/QD
     Route: 048
     Dates: start: 20040410
  11. FOLIC ACID [Suspect]
     Dosage: 5 MG, UID/QD
     Route: 048
     Dates: start: 20040809
  12. PROGRAF [Suspect]
     Dosage: 0.5 MG, UID/QD
     Route: 048
     Dates: start: 20061216
  13. RHEUMATREX [Suspect]
     Indication: RHEUMATOID ARTHRITIS
     Dosage: 4 MG, UID/QD
     Route: 048
     Dates: start: 20040410
  14. PREDNISOLONE [Suspect]
     Indication: RHEUMATOID ARTHRITIS
     Dosage: 5 MG, BID
     Route: 048
     Dates: start: 20040410
  15. LANSOPRAZOLE [Suspect]
     Indication: GASTROOESOPHAGEAL REFLUX DISEASE
     Dosage: 15 MG, UID/QD
     Route: 048
     Dates: start: 20100927
  16. LANSOPRAZOLE [Suspect]
     Dosage: 15 MG, UID/QD
     Route: 048
     Dates: start: 20101101

REACTIONS (1)
  - COLITIS ULCERATIVE [None]
